FAERS Safety Report 24540714 (Version 1)
Quarter: 2024Q4

REPORT INFORMATION
  Report Type: Spontaneous
  Country: US (occurrence: None)
  Receive Date: 20241022
  Receipt Date: 20241022
  Transmission Date: 20250114
  Serious: Yes (Other)
  Sender: Public
  Company Number: None

PATIENT
  Age: 60 Year
  Sex: Male

DRUGS (2)
  1. CARVYKTI [Suspect]
     Active Substance: CILTACABTAGENE AUTOLEUCEL
     Indication: Plasma cell myeloma
     Dosage: OTHER FREQUENCY : ONCE;?
     Route: 042
     Dates: start: 20230822, end: 20230822
  2. CARVYKTI [Suspect]
     Active Substance: CILTACABTAGENE AUTOLEUCEL
     Indication: Light chain analysis increased

REACTIONS (5)
  - Lymphocyte adoptive therapy [None]
  - Cytokine release syndrome [None]
  - Pancytopenia [None]
  - Blast cells present [None]
  - CD34 cell count increased [None]

NARRATIVE: CASE EVENT DATE: 20240912
